FAERS Safety Report 7128014 (Version 6)
Quarter: 2013Q3

REPORT INFORMATION
  Report Type: Spontaneous
  Country: US (occurrence: US)
  Receive Date: 20090924
  Receipt Date: 20130916
  Transmission Date: 20140515
  Serious: No
  Sender: FDA-Public Use
  Company Number: US-ASTRAZENECA-2009SE06103

PATIENT
  Age: 40 Year
  Sex: Female

DRUGS (27)
  1. SEROQUEL [Suspect]
     Indication: SLEEP DISORDER
     Route: 048
     Dates: start: 200905
  2. SEROQUEL [Suspect]
     Indication: BIPOLAR DISORDER
     Route: 048
     Dates: start: 200905
  3. SEROQUEL [Suspect]
     Indication: SCHIZOAFFECTIVE DISORDER BIPOLAR TYPE
     Route: 048
     Dates: start: 200905
  4. SEROQUEL [Suspect]
     Indication: SLEEP DISORDER
     Route: 048
     Dates: start: 200905
  5. SEROQUEL [Suspect]
     Indication: BIPOLAR DISORDER
     Route: 048
     Dates: start: 200905
  6. SEROQUEL [Suspect]
     Indication: SCHIZOAFFECTIVE DISORDER BIPOLAR TYPE
     Route: 048
     Dates: start: 200905
  7. SEROQUEL [Suspect]
     Indication: SLEEP DISORDER
     Route: 048
  8. SEROQUEL [Suspect]
     Indication: BIPOLAR DISORDER
     Route: 048
  9. SEROQUEL [Suspect]
     Indication: SCHIZOAFFECTIVE DISORDER BIPOLAR TYPE
     Route: 048
  10. SEROQUEL [Suspect]
     Indication: SLEEP DISORDER
     Route: 048
  11. SEROQUEL [Suspect]
     Indication: BIPOLAR DISORDER
     Route: 048
  12. SEROQUEL [Suspect]
     Indication: SCHIZOAFFECTIVE DISORDER BIPOLAR TYPE
     Route: 048
  13. SEROQUEL [Suspect]
     Indication: SLEEP DISORDER
     Route: 048
  14. SEROQUEL [Suspect]
     Indication: BIPOLAR DISORDER
     Route: 048
  15. SEROQUEL [Suspect]
     Indication: SCHIZOAFFECTIVE DISORDER BIPOLAR TYPE
     Route: 048
  16. SEROQUEL [Suspect]
     Indication: SLEEP DISORDER
     Dosage: 200 TO 250 MG AT BED TIME
     Route: 048
  17. SEROQUEL [Suspect]
     Indication: BIPOLAR DISORDER
     Dosage: 200 TO 250 MG AT BED TIME
     Route: 048
  18. SEROQUEL [Suspect]
     Indication: SCHIZOAFFECTIVE DISORDER BIPOLAR TYPE
     Dosage: 200 TO 250 MG AT BED TIME
     Route: 048
  19. SEROQUEL [Suspect]
     Indication: SLEEP DISORDER
     Route: 048
  20. SEROQUEL [Suspect]
     Indication: BIPOLAR DISORDER
     Route: 048
  21. SEROQUEL [Suspect]
     Indication: SCHIZOAFFECTIVE DISORDER BIPOLAR TYPE
     Route: 048
  22. SEROQUEL [Suspect]
     Indication: SLEEP DISORDER
     Route: 048
  23. SEROQUEL [Suspect]
     Indication: BIPOLAR DISORDER
     Route: 048
  24. SEROQUEL [Suspect]
     Indication: SCHIZOAFFECTIVE DISORDER BIPOLAR TYPE
     Route: 048
  25. SEROQUEL [Suspect]
     Indication: SLEEP DISORDER
     Route: 048
  26. SEROQUEL [Suspect]
     Indication: BIPOLAR DISORDER
     Route: 048
  27. SEROQUEL [Suspect]
     Indication: SCHIZOAFFECTIVE DISORDER BIPOLAR TYPE
     Route: 048

REACTIONS (17)
  - Road traffic accident [Unknown]
  - Bipolar disorder [Unknown]
  - Neck injury [Unknown]
  - Delusion [Unknown]
  - Adverse event [Unknown]
  - Gastrointestinal pain [Unknown]
  - Insomnia [Unknown]
  - Insomnia [Unknown]
  - Malaise [Unknown]
  - Tinnitus [Unknown]
  - Bruxism [Unknown]
  - Hallucination [Unknown]
  - Somnolence [Unknown]
  - Lethargy [Unknown]
  - Drug dose omission [Unknown]
  - Drug ineffective [Unknown]
  - Drug dispensing error [Unknown]
